FAERS Safety Report 16313911 (Version 1)
Quarter: 2019Q2

REPORT INFORMATION
  Report Type: Spontaneous
  Country: US (occurrence: US)
  Receive Date: 20190514
  Receipt Date: 20190514
  Transmission Date: 20190711
  Serious: No
  Sender: FDA-Public Use
  Company Number: None

PATIENT
  Sex: Female

DRUGS (1)
  1. ZEJULA [Suspect]
     Active Substance: NIRAPARIB
     Indication: OVARIAN CANCER
     Route: 048
     Dates: start: 20180101, end: 20180701

REACTIONS (3)
  - Loss of personal independence in daily activities [None]
  - Vomiting [None]
  - Platelet count decreased [None]

NARRATIVE: CASE EVENT DATE: 20180101
